FAERS Safety Report 13594430 (Version 1)
Quarter: 2017Q2

REPORT INFORMATION
  Report Type: Spontaneous
  Country: US (occurrence: US)
  Receive Date: 20170530
  Receipt Date: 20170530
  Transmission Date: 20170830
  Serious: No
  Sender: FDA-Public Use
  Company Number: PHEH2017US016031

PATIENT
  Sex: Female

DRUGS (1)
  1. AFINITOR [Suspect]
     Active Substance: EVEROLIMUS
     Indication: NEUROENDOCRINE TUMOUR
     Dosage: 5 MG/KG, QD
     Route: 048

REACTIONS (3)
  - Stomatitis [Recovering/Resolving]
  - Pruritus [Not Recovered/Not Resolved]
  - Arthralgia [Recovering/Resolving]
